FAERS Safety Report 8770670 (Version 2)
Quarter: 2012Q4

REPORT INFORMATION
  Report Type: Report from Study
  Country: DE (occurrence: DE)
  Receive Date: 20120906
  Receipt Date: 20120917
  Transmission Date: 20130627
  Serious: No
  Sender: FDA-Public Use
  Company Number: DE-009507513-1208DEU011175

PATIENT

DRUGS (2)
  1. PEGINTERFERON ALFA-2B [Suspect]
     Indication: HEPATITIS C
     Dosage: 100 Microgram, qw
     Route: 058
     Dates: start: 20060531, end: 20060921
  2. COPEGUS [Suspect]
     Indication: HEPATITIS C
     Dosage: 1000 mg, UNK
     Route: 048
     Dates: start: 20060531, end: 20060921

REACTIONS (3)
  - Pain in extremity [Recovered/Resolved]
  - Pyrexia [Recovered/Resolved]
  - Headache [Recovered/Resolved]
